FAERS Safety Report 5835424-9 (Version None)
Quarter: 2008Q3

REPORT INFORMATION
  Report Type: 
  Country: None (occurrence: None)
  Receive Date: 20080806
  Receipt Date: 20080729
  Transmission Date: 20090109
  Serious: Yes (Other)
  Sender: FDA-Public Use
  Company Number: US-JNJFOC-20080800069

PATIENT
  Sex: Female
  Weight: 54.43 kg

DRUGS (7)
  1. LEVAQUIN [Suspect]
     Indication: URINARY TRACT INFECTION
     Route: 048
  2. LEVAQUIN [Suspect]
     Indication: SINUSITIS
     Route: 048
  3. COZAAR [Concomitant]
     Indication: BLOOD PRESSURE
     Route: 065
  4. VITAMIN TAB [Concomitant]
     Indication: NUTRITIONAL SUPPORT
     Route: 065
  5. ASPIRIN [Concomitant]
     Indication: NUTRITIONAL SUPPORT
     Route: 065
  6. GARLIC [Concomitant]
     Indication: NUTRITIONAL SUPPORT
     Route: 065
  7. CALCIUM [Concomitant]
     Indication: NUTRITIONAL SUPPORT
     Route: 065

REACTIONS (6)
  - ANXIETY [None]
  - ASTHENIA [None]
  - HYPERTENSION [None]
  - INSOMNIA [None]
  - MALAISE [None]
  - TREMOR [None]
